FAERS Safety Report 14107711 (Version 3)
Quarter: 2017Q4

REPORT INFORMATION
  Report Type: Spontaneous
  Country: PT (occurrence: PT)
  Receive Date: 20171019
  Receipt Date: 20171026
  Transmission Date: 20180321
  Serious: Yes (Hospitalization)
  Sender: FDA-Public Use
  Company Number: PT-TEVA-815610ISR

PATIENT
  Age: 70 Year
  Sex: Female

DRUGS (2)
  1. DOCETAXEL (TEVA PRODUCT CANNOT BE EXCLUDED) [Suspect]
     Active Substance: DOCETAXEL
     Indication: LUNG NEOPLASM MALIGNANT
  2. CARBOPLATIN. [Suspect]
     Active Substance: CARBOPLATIN
     Indication: LUNG NEOPLASM MALIGNANT

REACTIONS (5)
  - Escherichia bacteraemia [Recovering/Resolving]
  - Bacterial pyelonephritis [Recovering/Resolving]
  - Cellulitis orbital [Unknown]
  - Febrile neutropenia [Recovering/Resolving]
  - Panophthalmitis [Recovering/Resolving]
